FAERS Safety Report 9373022 (Version 1)
Quarter: 2013Q2

REPORT INFORMATION
  Report Type: Spontaneous
  Country: FR (occurrence: FR)
  Receive Date: 20130627
  Receipt Date: 20130627
  Transmission Date: 20140414
  Serious: Yes (Other)
  Sender: FDA-Public Use
  Company Number: FR-ROXANE LABORATORIES, INC.-2013-RO-01038RO

PATIENT
  Age: 24 Year
  Sex: Male

DRUGS (1)
  1. LEVETIRACETAM [Suspect]

REACTIONS (1)
  - Electrocardiogram QT prolonged [Unknown]
